FAERS Safety Report 16677141 (Version 3)
Quarter: 2021Q2

REPORT INFORMATION
  Report Type: Spontaneous
  Country: US (occurrence: US)
  Receive Date: 20190807
  Receipt Date: 20210611
  Transmission Date: 20210716
  Serious: Yes (Hospitalization, Disabling, Other)
  Sender: FDA-Public Use
  Company Number: US-ASTRAZENECA-2019SF09582

PATIENT
  Age: 15064 Day
  Sex: Male
  Weight: 68 kg

DRUGS (33)
  1. PRILOSEC OTC [Suspect]
     Active Substance: OMEPRAZOLE MAGNESIUM
     Indication: GASTROOESOPHAGEAL REFLUX DISEASE
     Route: 048
     Dates: start: 2010, end: 2013
  2. PRILOSEC OTC [Suspect]
     Active Substance: OMEPRAZOLE MAGNESIUM
     Indication: GASTROOESOPHAGEAL REFLUX DISEASE
     Route: 048
     Dates: start: 201001, end: 201306
  3. PREVACID 24 HR [Suspect]
     Active Substance: LANSOPRAZOLE
     Indication: GASTROOESOPHAGEAL REFLUX DISEASE
     Route: 065
     Dates: start: 201003, end: 201106
  4. ABILIFY [Concomitant]
     Active Substance: ARIPIPRAZOLE
  5. CLONAZEPAM. [Concomitant]
     Active Substance: CLONAZEPAM
  6. COUMADIN [Concomitant]
     Active Substance: WARFARIN SODIUM
  7. ALLOPURINOL. [Concomitant]
     Active Substance: ALLOPURINOL
     Indication: GOUT
  8. PAROXETINE. [Concomitant]
     Active Substance: PAROXETINE
  9. CEPHALEXIN. [Concomitant]
     Active Substance: CEPHALEXIN
  10. PRILOSEC [Suspect]
     Active Substance: OMEPRAZOLE MAGNESIUM
     Route: 048
     Dates: start: 201001, end: 201306
  11. PREVACID 24 HR [Suspect]
     Active Substance: LANSOPRAZOLE
     Indication: GASTROOESOPHAGEAL REFLUX DISEASE
     Route: 065
     Dates: start: 2010, end: 2013
  12. LISINOPRIL. [Concomitant]
     Active Substance: LISINOPRIL
  13. CALCIUM [Concomitant]
     Active Substance: CALCIUM
  14. GENTAMICIN. [Concomitant]
     Active Substance: GENTAMICIN
  15. TRILEPTAL [Concomitant]
     Active Substance: OXCARBAZEPINE
  16. BENZONATATE. [Concomitant]
     Active Substance: BENZONATATE
     Indication: COUGH
  17. CLINDAMYCIN. [Concomitant]
     Active Substance: CLINDAMYCIN
  18. RENVELA [Concomitant]
     Active Substance: SEVELAMER CARBONATE
  19. BUSPIRONE [Concomitant]
     Active Substance: BUSPIRONE HYDROCHLORIDE
  20. TYLENOL [Concomitant]
     Active Substance: ACETAMINOPHEN
  21. OXYCODONE [Concomitant]
     Active Substance: OXYCODONE
  22. CHLORHEXIDINE [Concomitant]
     Active Substance: CHLORHEXIDINE
  23. ACETAMINOPHENE [Concomitant]
     Active Substance: ACETAMINOPHEN
  24. PROPOXYPHENE. [Concomitant]
     Active Substance: PROPOXYPHENE
  25. OFLOXACIN. [Concomitant]
     Active Substance: OFLOXACIN
  26. FUROSEMIDE. [Concomitant]
     Active Substance: FUROSEMIDE
  27. PREVACID [Suspect]
     Active Substance: LANSOPRAZOLE
     Indication: GASTROOESOPHAGEAL REFLUX DISEASE
     Route: 065
     Dates: start: 201001, end: 201306
  28. LEVETIRACETAM. [Concomitant]
     Active Substance: LEVETIRACETAM
  29. WARFARIN [Concomitant]
     Active Substance: WARFARIN
     Indication: ANTICOAGULANT THERAPY
  30. AMLODIPINE [Concomitant]
     Active Substance: AMLODIPINE BESYLATE
  31. ZANTAC [Concomitant]
     Active Substance: RANITIDINE HYDROCHLORIDE
  32. MIRTAZAPINE. [Concomitant]
     Active Substance: MIRTAZAPINE
  33. SERTRALINE [Concomitant]
     Active Substance: SERTRALINE HYDROCHLORIDE

REACTIONS (3)
  - Acute kidney injury [Not Recovered/Not Resolved]
  - Chronic kidney disease [Not Recovered/Not Resolved]
  - Renal failure [Unknown]

NARRATIVE: CASE EVENT DATE: 20130912
